FAERS Safety Report 7690985-2 (Version None)
Quarter: 2011Q3

REPORT INFORMATION
  Report Type: 
  Country: None (occurrence: None)
  Receive Date: 20110812
  Receipt Date: 20110802
  Transmission Date: 20111222
  Serious: Yes (Death, Hospitalization)
  Sender: FDA-Public Use
  Company Number: 999923

PATIENT
  Age: 57 Year
  Sex: Male

DRUGS (3)
  1. FLUDARABINE PHOSPHATE [Suspect]
     Indication: DISEASE PROGRESSION
  2. REBIF [Suspect]
     Indication: RELAPSING-REMITTING MULTIPLE SCLEROSIS
     Dosage: 44 UG MICROGRAM(S), 1 WEEK,
  3. CYCLOPHOSPHAMIDE [Suspect]
     Indication: DISEASE PROGRESSION

REACTIONS (6)
  - NEOPLASM PROGRESSION [None]
  - AUTOIMMUNE PANCYTOPENIA [None]
  - PNEUMONIA [None]
  - CHRONIC LYMPHOCYTIC LEUKAEMIA [None]
  - FUNGAL INFECTION [None]
  - LOWER RESPIRATORY TRACT INFECTION [None]
